FAERS Safety Report 15122091 (Version 1)
Quarter: 2018Q3

REPORT INFORMATION
  Report Type: Spontaneous
  Country: FR (occurrence: FR)
  Receive Date: 20180709
  Receipt Date: 20180709
  Transmission Date: 20181010
  Serious: Yes (Other)
  Sender: FDA-Public Use
  Company Number: FR-ALLERGAN-1834012US

PATIENT
  Age: 47 Year
  Sex: Female

DRUGS (6)
  1. METEOSPASMYL [ALVERINE CITRATE;DL?METHIONINE [Concomitant]
     Active Substance: ALVERINE CITRATE\RACEMETHIONINE
     Indication: ABDOMINAL PAIN UPPER
  2. ESCITALOPRAM OXALATE ? BP [Suspect]
     Active Substance: ESCITALOPRAM OXALATE
     Indication: PRODUCT USED FOR UNKNOWN INDICATION
     Dosage: UNK, UNKNOWN
     Route: 065
  3. METEOSPASMYL [ALVERINE CITRATE;DL?METHIONINE [Concomitant]
     Active Substance: ALVERINE CITRATE\RACEMETHIONINE
     Indication: ABDOMINAL DISTENSION
     Route: 065
  4. COPPER IUD [Concomitant]
     Active Substance: COPPER
     Indication: PRODUCT USED FOR UNKNOWN INDICATION
     Route: 065
  5. ESCITALOPRAM OXALATE ? BP [Suspect]
     Active Substance: ESCITALOPRAM OXALATE
     Indication: PRODUCT USED FOR UNKNOWN INDICATION
     Dosage: UNK, UNKNOWN
     Route: 065
  6. ESCITALOPRAM OXALATE ? BP [Suspect]
     Active Substance: ESCITALOPRAM OXALATE
     Indication: DEPRESSION
     Dosage: 10 MG, QD
     Route: 048

REACTIONS (2)
  - Colitis microscopic [Unknown]
  - Diarrhoea [Unknown]

NARRATIVE: CASE EVENT DATE: 20180608
